FAERS Safety Report 5700003-0 (Version None)
Quarter: 2008Q2

REPORT INFORMATION
  Report Type: 
  Country: None (occurrence: None)
  Receive Date: 20080410
  Receipt Date: 20080407
  Transmission Date: 20081010
  Serious: Yes (Hospitalization)
  Sender: FDA-Public Use
  Company Number: AT-ASTRAZENECA-2008PK00717

PATIENT
  Sex: Female

DRUGS (1)
  1. DIPRIVAN [Suspect]

REACTIONS (7)
  - HIP ARTHROPLASTY [None]
  - KNEE ARTHROPLASTY [None]
  - MUSCLE NECROSIS [None]
  - NECROSIS [None]
  - OVERDOSE [None]
  - PROPOFOL INFUSION SYNDROME [None]
  - RHABDOMYOLYSIS [None]
